FAERS Safety Report 7359038-7 (Version None)
Quarter: 2011Q1

REPORT INFORMATION
  Report Type: 
  Country: None (occurrence: None)
  Receive Date: 20110317
  Receipt Date: 20110315
  Transmission Date: 20110831
  Serious: Yes (Other)
  Sender: FDA-Public Use
  Company Number: US-PFIZER INC-2011056887

PATIENT
  Sex: Female
  Weight: 86.168 kg

DRUGS (6)
  1. CHANTIX [Suspect]
     Dosage: 1 MG, 2X/DAY
     Dates: start: 20110101
  2. METFORMIN [Concomitant]
     Indication: TYPE 2 DIABETES MELLITUS
     Dosage: 500 MG, 2X/DAY
  3. CHANTIX [Suspect]
     Indication: SMOKING CESSATION THERAPY
     Dosage: 0.5 MG, 1X/DAY
     Dates: start: 20080601
  4. PAXIL [Suspect]
     Indication: DEPRESSION
     Dosage: UNK
  5. LOTREL [Concomitant]
     Indication: HYPERTENSION
     Dosage: 10/20
  6. KLONOPIN [Concomitant]
     Indication: SLEEP DISORDER
     Dosage: 2 MG, AS NEEDED

REACTIONS (2)
  - COLONIC POLYP [None]
  - ALOPECIA [None]
